FAERS Safety Report 4759862-0 (Version None)
Quarter: 2005Q3

REPORT INFORMATION
  Report Type: 
  Country: None (occurrence: None)
  Receive Date: 20050831
  Receipt Date: 20050831
  Transmission Date: 20060218
  Serious: Yes (Hospitalization)
  Sender: FDA-Public Use
  Company Number: None

PATIENT
  Age: 59 Year
  Sex: Female

DRUGS (1)
  1. AMPHOTERICIN B [Suspect]
     Indication: FEBRILE NEUTROPENIA
     Dosage: 0.27 MG/KG   DAILY IV
     Route: 042

REACTIONS (2)
  - BLOOD CREATININE INCREASED [None]
  - MENTAL STATUS CHANGES [None]
